FAERS Safety Report 9376271 (Version 1)
Quarter: 2013Q3

REPORT INFORMATION
  Report Type: Spontaneous
  Country: GB (occurrence: GB)
  Receive Date: 20130701
  Receipt Date: 20130701
  Transmission Date: 20140515
  Serious: Yes (Other)
  Sender: FDA-Public Use
  Company Number: PHHY2013GB064658

PATIENT
  Age: 54 Year
  Sex: Female
  Weight: 84 kg

DRUGS (8)
  1. PHENOXYMETHYLPENICILLIN [Suspect]
     Dates: start: 20130610
  2. DOSULEPIN [Concomitant]
     Dates: start: 20130116
  3. RAMIPRIL [Concomitant]
     Dates: start: 20130214
  4. DILTIAZEM [Concomitant]
     Dates: start: 20130304, end: 20130403
  5. FENBID [Concomitant]
     Dates: start: 20130304, end: 20130314
  6. LORATADINE [Concomitant]
     Dates: start: 20130514, end: 20130521
  7. SODIUM CROMOGLICATE [Concomitant]
     Dates: start: 20130514, end: 20130524
  8. TIMODINE [Concomitant]
     Dates: start: 20130514, end: 20130524

REACTIONS (2)
  - Chest pain [Recovered/Resolved]
  - Rash [Recovered/Resolved]
